FAERS Safety Report 6667195-0 (Version None)
Quarter: 2010Q2

REPORT INFORMATION
  Report Type: 
  Country: None (occurrence: None)
  Receive Date: 20100405
  Receipt Date: 20100331
  Transmission Date: 20101027
  Serious: Yes (Death, Other)
  Sender: FDA-Public Use
  Company Number: DE-CELGENEUS-062-21880-09100811

PATIENT
  Age: 69 Year
  Sex: Male
  Weight: 80 kg

DRUGS (4)
  1. REVLIMID [Suspect]
     Indication: PLASMACYTOMA
     Route: 048
     Dates: start: 20090806, end: 20090825
  2. DEXAMETHASONE [Suspect]
     Indication: PLASMACYTOMA
     Route: 065
     Dates: start: 20090822, end: 20090825
  3. DEXAMETHASONE [Suspect]
     Route: 065
     Dates: start: 20090814, end: 20090817
  4. DEXAMETHASONE [Suspect]
     Route: 065
     Dates: start: 20090806, end: 20090809

REACTIONS (1)
  - DYSPNOEA [None]
